FAERS Safety Report 12332532 (Version 1)
Quarter: 2016Q2

REPORT INFORMATION
  Report Type: Other
  Country: US (occurrence: US)
  Receive Date: 20160504
  Receipt Date: 20160504
  Transmission Date: 20160815
  Serious: Yes (Other)
  Sender: FDA-Public Use
  Company Number: US-SHIRE-US201604919

PATIENT
  Sex: Male
  Weight: 83.9 kg

DRUGS (1)
  1. GATTEX [Suspect]
     Active Substance: TEDUGLUTIDE\WATER
     Indication: SHORT-BOWEL SYNDROME
     Dosage: UNK UNK, UNKNOWN
     Route: 058
     Dates: start: 20160328

REACTIONS (4)
  - Adverse event [Unknown]
  - Megacolon [Unknown]
  - Gastrointestinal oedema [Unknown]
  - Cough [Unknown]
